FAERS Safety Report 6665819-5 (Version None)
Quarter: 2010Q2

REPORT INFORMATION
  Report Type: 
  Country: None (occurrence: None)
  Receive Date: 20100402
  Receipt Date: 20100331
  Transmission Date: 20101027
  Serious: No
  Sender: FDA-Public Use
  Company Number: AR-ROCHE-642276

PATIENT
  Sex: Female
  Weight: 1.4 kg

DRUGS (2)
  1. ROACCUTAN [Suspect]
     Indication: ACNE
     Dates: start: 20090422, end: 20090703
  2. LEVOTHYROXINE SODIUM [Concomitant]
     Indication: HYPOTHYROIDISM
     Dosage: DRUG NAME REPORTED AS ^LEVOTIROXINE^.

REACTIONS (1)
  - PREMATURE LABOUR [None]
